FAERS Safety Report 5801483-2 (Version None)
Quarter: 2008Q3

REPORT INFORMATION
  Report Type: 
  Country: None (occurrence: None)
  Receive Date: 20080707
  Receipt Date: 20080627
  Transmission Date: 20090109
  Serious: Yes (Other)
  Sender: FDA-Public Use
  Company Number: GB-ROCHE-573086

PATIENT
  Sex: Male
  Weight: 95 kg

DRUGS (2)
  1. ORLISTAT [Suspect]
     Indication: OBESITY
     Route: 048
     Dates: start: 20080516
  2. INSULIN [Concomitant]

REACTIONS (1)
  - HAEMATOCHEZIA [None]
